FAERS Safety Report 6735087-4 (Version None)
Quarter: 2010Q2

REPORT INFORMATION
  Report Type: 
  Country: None (occurrence: None)
  Receive Date: 20100519
  Receipt Date: 20100519
  Transmission Date: 20101027
  Serious: Yes (Other)
  Sender: FDA-Public Use
  Company Number: None

PATIENT
  Age: 47 Year
  Sex: Female
  Weight: 106.5953 kg

DRUGS (12)
  1. ACTEMRA [Suspect]
     Indication: RHEUMATOID ARTHRITIS
     Dosage: 4 -} (427 MG) Q4WK IV
     Route: 042
     Dates: start: 20100308
  2. ACTEMRA [Suspect]
     Indication: RHEUMATOID ARTHRITIS
     Dosage: 4 -} (427 MG) Q4WK IV
     Route: 042
     Dates: start: 20100405
  3. ACTEMRA [Suspect]
     Indication: RHEUMATOID ARTHRITIS
     Dosage: 4 -} (427 MG) Q4WK IV
     Route: 042
     Dates: start: 20100406
  4. ACTEMRA [Suspect]
  5. METHOTREXATE [Concomitant]
  6. PREDNISONE TAB [Concomitant]
  7. FOLIC ACID [Concomitant]
  8. DICLOFENAC [Concomitant]
  9. METFORMIN HYDROCHLORIDE [Concomitant]
  10. VICODIN [Concomitant]
  11. OMEPRAZOLE [Concomitant]
  12. CITALOPRAM [Concomitant]

REACTIONS (1)
  - HERPES ZOSTER [None]
